FAERS Safety Report 17052987 (Version 1)
Quarter: 2019Q4

REPORT INFORMATION
  Report Type: Spontaneous
  Country: US (occurrence: US)
  Receive Date: 20191120
  Receipt Date: 20191120
  Transmission Date: 20200122
  Serious: Yes (Death)
  Sender: FDA-Public Use
  Company Number: None

PATIENT
  Sex: Female

DRUGS (2)
  1. JULUCA [Suspect]
     Active Substance: DOLUTEGRAVIR SODIUM\RILPIVIRINE HYDROCHLORIDE
     Indication: HIV INFECTION
     Dosage: ?          OTHER FREQUENCY:TK 1 T PO D;?
     Route: 048
     Dates: start: 20190326
  2. ADVIL [Concomitant]
     Active Substance: IBUPROFEN

REACTIONS (1)
  - Death [None]
